FAERS Safety Report 20955048 (Version 2)
Quarter: 2022Q3

REPORT INFORMATION
  Report Type: Spontaneous
  Country: JP (occurrence: JP)
  Receive Date: 20220614
  Receipt Date: 20220701
  Transmission Date: 20221027
  Serious: Yes (Hospitalization)
  Sender: FDA-Public Use
  Company Number: JP-Teva Takeda Yakuhin-2022-JP-002363J

PATIENT
  Age: 80 Year
  Sex: Female

DRUGS (2)
  1. PREDNISOLONE [Suspect]
     Active Substance: PREDNISOLONE
     Indication: Product used for unknown indication
     Dosage: DOSAGE IS UNKNOWN, ON ALTERNATE DAYS OR SO
     Route: 048
     Dates: start: 2022, end: 20220512
  2. MOBIC [Concomitant]
     Active Substance: MELOXICAM
     Indication: Product used for unknown indication
     Dosage: DOSAGE IS UNKNOWN
     Route: 048

REACTIONS (9)
  - Glycosuria [Recovering/Resolving]
  - Peripheral swelling [Unknown]
  - Pain in extremity [Unknown]
  - Weight decreased [Unknown]
  - Pain in extremity [Unknown]
  - Gait disturbance [Unknown]
  - Bedridden [Unknown]
  - Therapy cessation [Unknown]
  - Product use issue [Unknown]

NARRATIVE: CASE EVENT DATE: 20220101
